FAERS Safety Report 18413466 (Version 1)
Quarter: 2020Q4

REPORT INFORMATION
  Report Type: Report from Study
  Country: US (occurrence: US)
  Receive Date: 20201022
  Receipt Date: 20201022
  Transmission Date: 20210114
  Serious: Yes (Hospitalization, Other)
  Sender: FDA-Public Use
  Company Number: US-GILEAD-2020-0499962

PATIENT
  Age: 55 Year
  Sex: Female

DRUGS (24)
  1. AMBRISENTAN [Suspect]
     Active Substance: AMBRISENTAN
     Indication: PRODUCT USED FOR UNKNOWN INDICATION
     Dosage: 5 MG, QD
     Route: 065
     Dates: start: 2020
  2. REMODULIN [Suspect]
     Active Substance: TREPROSTINIL
     Indication: PULMONARY ARTERIAL HYPERTENSION
     Dosage: 2.5 MG/ML
     Route: 058
     Dates: start: 2020
  3. REMODULIN [Suspect]
     Active Substance: TREPROSTINIL
     Dosage: 0.54 UG/KG
     Route: 058
     Dates: start: 2020
  4. MULTIVITAMINS [VITAMINS NOS] [Concomitant]
     Active Substance: VITAMINS
  5. VITAMIN D3 [Concomitant]
     Active Substance: CHOLECALCIFEROL
  6. VITAMIN E [DL-ALPHA TOCOPHERYL ACETATE] [Concomitant]
  7. REMODULIN [Suspect]
     Active Substance: TREPROSTINIL
     Dosage: 0.22 UG/KG
     Route: 058
     Dates: start: 2020
  8. ALYQ [Concomitant]
     Active Substance: TADALAFIL
  9. XYZAL [Concomitant]
     Active Substance: LEVOCETIRIZINE DIHYDROCHLORIDE
  10. AMBRISENTAN [Suspect]
     Active Substance: AMBRISENTAN
     Dosage: 10 UNK
     Route: 065
  11. K-DUR [Concomitant]
     Active Substance: POTASSIUM CHLORIDE
  12. FERROUS SULFATE. [Concomitant]
     Active Substance: FERROUS SULFATE
  13. LOPRESSOR [Concomitant]
     Active Substance: METOPROLOL TARTRATE
  14. DEMADEX [Concomitant]
     Active Substance: TORSEMIDE
  15. REMODULIN [Suspect]
     Active Substance: TREPROSTINIL
     Dosage: UNK
     Route: 065
  16. METFORMINE [METFORMIN HYDROCHLORIDE] [Concomitant]
     Active Substance: METFORMIN HYDROCHLORIDE
  17. ZYRTEC [Concomitant]
     Active Substance: CETIRIZINE HYDROCHLORIDE
  18. ASPIRIN BUFFERED [Concomitant]
     Active Substance: ASPIRIN
  19. COLACE [Concomitant]
     Active Substance: DOCUSATE SODIUM
  20. REMODULIN [Suspect]
     Active Substance: TREPROSTINIL
     Dosage: 0.36 UG/KG
     Route: 058
     Dates: start: 2020
  21. TYLENOL [Concomitant]
     Active Substance: ACETAMINOPHEN
  22. DIGOXIN. [Concomitant]
     Active Substance: DIGOXIN
  23. ZOFRAN [Concomitant]
     Active Substance: ONDANSETRON HYDROCHLORIDE
  24. REMODULIN [Suspect]
     Active Substance: TREPROSTINIL
     Dosage: 0.02 UG/KG
     Route: 058
     Dates: start: 2020

REACTIONS (12)
  - Acute respiratory failure [Unknown]
  - Brain natriuretic peptide increased [Not Recovered/Not Resolved]
  - Chronic kidney disease [Not Recovered/Not Resolved]
  - Sleep apnoea syndrome [Not Recovered/Not Resolved]
  - Weight increased [Unknown]
  - Acute kidney injury [Not Recovered/Not Resolved]
  - Pain [Unknown]
  - Peripheral swelling [Not Recovered/Not Resolved]
  - COVID-19 [Recovered/Resolved]
  - Cardiac failure acute [Unknown]
  - Tricuspid valve incompetence [Not Recovered/Not Resolved]
  - Fluid retention [Unknown]

NARRATIVE: CASE EVENT DATE: 2020
